FAERS Safety Report 5374662-9 (Version None)
Quarter: 2007Q2

REPORT INFORMATION
  Report Type: 
  Country: None (occurrence: None)
  Receive Date: 20070629
  Receipt Date: 20070622
  Transmission Date: 20071010
  Serious: Yes (Hospitalization, Other)
  Sender: FDA-Public Use
  Company Number: AU-AVENTIS-200715130GDDC

PATIENT
  Age: 65 Year
  Sex: Male

DRUGS (8)
  1. LANTUS [Suspect]
     Route: 058
     Dates: start: 20061101
  2. AUTOPEN INSULIN INJECTION PEN [Suspect]
     Route: 058
  3. METFORMIN HCL [Concomitant]
  4. GLYADE [Concomitant]
  5. PLAVIX [Concomitant]
     Indication: HYPERTENSION
  6. ASPIRIN [Concomitant]
     Indication: HYPERTENSION
  7. SIMVAR [Concomitant]
     Indication: HYPERTENSION
  8. ANATENSOL [Concomitant]

REACTIONS (2)
  - NO ADVERSE DRUG EFFECT [None]
  - RENAL IMPAIRMENT [None]
